FAERS Safety Report 4380989-X (Version None)
Quarter: 2004Q2

REPORT INFORMATION
  Report Type: 
  Country: None (occurrence: None)
  Receive Date: 20040614
  Receipt Date: 20040608
  Transmission Date: 20050107
  Serious: Yes (Disabling)
  Sender: FDA-Public Use
  Company Number: NLWYE810508JUN04

PATIENT
  Age: 60 Year
  Sex: Male

DRUGS (3)
  1. EFFEXOR XR [Suspect]
     Indication: MAJOR DEPRESSION
     Dosage: 64 MG 5X PER 1 DAY; ORAL
     Route: 048
     Dates: start: 20040413, end: 20040517
  2. QUETIAPINE [Concomitant]
  3. OMNIC (TAMSULOSIN HYDROCHLORIDE) [Concomitant]

REACTIONS (2)
  - BENIGN PROSTATIC HYPERPLASIA [None]
  - CONDITION AGGRAVATED [None]
